FAERS Safety Report 21454397 (Version 1)
Quarter: 2022Q4

REPORT INFORMATION
  Report Type: Spontaneous
  Country: US (occurrence: None)
  Receive Date: 20221013
  Receipt Date: 20221013
  Transmission Date: 20230112
  Serious: Yes (Death)
  Sender: FDA-Public Use
  Company Number: None

PATIENT
  Age: 50 Year
  Sex: Female

DRUGS (1)
  1. TEMOZOLOMIDE [Suspect]
     Active Substance: TEMOZOLOMIDE
     Dosage: 400MG DAILY ORAL?
     Route: 048
     Dates: start: 202209, end: 202210

REACTIONS (1)
  - Death [None]

NARRATIVE: CASE EVENT DATE: 20221013
